FAERS Safety Report 9333850 (Version 1)
Quarter: 2013Q2

REPORT INFORMATION
  Report Type: Spontaneous
  Country: US (occurrence: US)
  Receive Date: 20130606
  Receipt Date: 20130606
  Transmission Date: 20140414
  Serious: No
  Sender: FDA-Public Use
  Company Number: US-AMGEN-USASP2013011134

PATIENT
  Age: 77 Year
  Sex: Female

DRUGS (1)
  1. PROLIA [Suspect]
     Indication: PRODUCT USED FOR UNKNOWN INDICATION
     Dosage: UNK
     Dates: start: 20120805

REACTIONS (11)
  - Feeling abnormal [Recovered/Resolved]
  - Paraesthesia [Unknown]
  - Urinary tract infection [Unknown]
  - Gingival pain [Unknown]
  - Dysphonia [Unknown]
  - Dysphagia [Unknown]
  - Vitamin D decreased [Unknown]
  - Hypoaesthesia [Unknown]
  - Pain in extremity [Unknown]
  - Gastrooesophageal reflux disease [Recovered/Resolved]
  - Myalgia [Unknown]
